FAERS Safety Report 5705503-5 (Version None)
Quarter: 2008Q2

REPORT INFORMATION
  Report Type: 
  Country: None (occurrence: None)
  Receive Date: 20080411
  Receipt Date: 20080401
  Transmission Date: 20081010
  Serious: No
  Sender: FDA-Public Use
  Company Number: 02100-JPN-07-0665

PATIENT
  Age: 70 Year
  Sex: Female

DRUGS (6)
  1. PLETAL [Suspect]
     Indication: ANTIPLATELET THERAPY
  2. ASPIRIN [Suspect]
     Indication: ANTIPLATELET THERAPY
     Dosage: 200 MG, QD ORAL
     Route: 048
     Dates: start: 20070708, end: 20071019
  3. CLOPIDOGREL [Suspect]
     Indication: ANTIPLATELET THERAPY
     Dosage: 75 MG, QD; ORAL
     Route: 048
     Dates: start: 20070708, end: 20071019
  4. ISOSORBIDE DINITRATE [Suspect]
  5. ROSUVASTATIN CALCIUM [Suspect]
  6. BISOPROLOL FUMARATE [Concomitant]

REACTIONS (1)
  - ACUTE MYELOID LEUKAEMIA [None]
